FAERS Safety Report 16075395 (Version 1)
Quarter: 2019Q1

REPORT INFORMATION
  Report Type: Spontaneous
  Country: JP (occurrence: JP)
  Receive Date: 20190315
  Receipt Date: 20190315
  Transmission Date: 20190418
  Serious: Yes (Hospitalization, Other)
  Sender: FDA-Public Use
  Company Number: JP-009507513-1903JPN000431J

PATIENT
  Age: 7 Decade
  Sex: Male

DRUGS (6)
  1. BELSOMRA [Suspect]
     Active Substance: SUVOREXANT
     Indication: ALCOHOL WITHDRAWAL SYNDROME
  2. LEXOTAN [Suspect]
     Active Substance: BROMAZEPAM
     Indication: ALCOHOL WITHDRAWAL SYNDROME
     Dosage: 5 MILLIGRAM, TID,DAY
     Route: 048
     Dates: start: 201812, end: 201812
  3. ABILIFY [Concomitant]
     Active Substance: ARIPIPRAZOLE
     Indication: ALCOHOL WITHDRAWAL SYNDROME
     Dosage: 30 MILLIGRAM
     Route: 048
     Dates: start: 201812, end: 201812
  4. VALERIN [Concomitant]
     Indication: ALCOHOL WITHDRAWAL SYNDROME
     Dosage: 600 MILLIGRAM
     Route: 048
     Dates: start: 201812, end: 201812
  5. BELSOMRA [Suspect]
     Active Substance: SUVOREXANT
     Indication: INSOMNIA
     Dosage: 20 MILLIGRAM, QD
     Route: 048
     Dates: start: 201812, end: 201812
  6. SILECE [Suspect]
     Active Substance: FLUNITRAZEPAM
     Indication: ALCOHOL WITHDRAWAL SYNDROME
     Dosage: 2 MILLIGRAM,NIGHT
     Route: 065
     Dates: start: 201812, end: 201812

REACTIONS (1)
  - Delirium [Recovered/Resolved]

NARRATIVE: CASE EVENT DATE: 201812
